FAERS Safety Report 4592280-7 (Version None)
Quarter: 2005Q1

REPORT INFORMATION
  Report Type: 
  Country: None (occurrence: None)
  Receive Date: 20050228
  Receipt Date: 20041115
  Transmission Date: 20050727
  Serious: Yes (Hospitalization)
  Sender: FDA-Public Use
  Company Number: US-BRISTOL-MYERS SQUIBB COMPANY-12766077

PATIENT
  Age: 42 Year
  Sex: Female

DRUGS (2)
  1. ARIPIPRAZOLE [Suspect]
  2. CLOZAPINE [Suspect]
     Dosage: 50-600 MG/DAY, STOPPED AND RESTARTED. THE PATIENT WAS IN THE PROCESS OF CHANGING TO ARIPIPRAZOLE.
     Route: 048
     Dates: start: 20020801

REACTIONS (2)
  - PSYCHOTIC DISORDER [None]
  - TREATMENT NONCOMPLIANCE [None]
